FAERS Safety Report 25703670 (Version 2)
Quarter: 2025Q4

REPORT INFORMATION
  Report Type: Other
  Country: US (occurrence: US)
  Receive Date: 20250820
  Receipt Date: 20251121
  Transmission Date: 20260118
  Serious: No
  Sender: VERASTEM
  Company Number: US-VERASTEM-250806US-AFCPK-00418

PATIENT

DRUGS (1)
  1. AVMAPKI FAKZYNJA CO-PACK [Suspect]
     Active Substance: AVUTOMETINIB POTASSIUM\DEFACTINIB HYDROCHLORIDE
     Indication: Ovarian cancer
     Dosage: TAKEN AS DIRECTED PER DOSING CARD
     Route: 048

REACTIONS (3)
  - Ocular icterus [Unknown]
  - Oedema peripheral [Unknown]
  - Rash [Unknown]
